FAERS Safety Report 13792743 (Version 3)
Quarter: 2017Q3

REPORT INFORMATION
  Report Type: Spontaneous
  Country: HU (occurrence: HU)
  Receive Date: 20170726
  Receipt Date: 20170922
  Transmission Date: 20171127
  Serious: No
  Sender: FDA-Public Use
  Company Number: HU-PFIZER INC-2017322916

PATIENT
  Age: 65 Year
  Sex: Female

DRUGS (1)
  1. SUTENT [Suspect]
     Active Substance: SUNITINIB MALATE
     Indication: RENAL CANCER
     Dosage: 50 MG, CYCLIC, DAILY ACCORDING TO THE 4/2 SCHEMA
     Route: 048
     Dates: start: 20151027

REACTIONS (1)
  - Hypertension [Not Recovered/Not Resolved]
